FAERS Safety Report 6505388-3 (Version None)
Quarter: 2009Q4

REPORT INFORMATION
  Report Type: 
  Country: None (occurrence: None)
  Receive Date: 20091217
  Receipt Date: 20091217
  Transmission Date: 20100525
  Serious: Yes (Other)
  Sender: FDA-Public Use
  Company Number: None

PATIENT
  Age: 69 Year
  Sex: Female
  Weight: 58.0604 kg

DRUGS (1)
  1. FORTEO [Suspect]
     Indication: OSTEOPOROSIS
     Dosage: 20 MCG ONCE A DAY
     Dates: start: 20090801, end: 20091211

REACTIONS (22)
  - ARTHRALGIA [None]
  - BACK PAIN [None]
  - CHEST PAIN [None]
  - CONSTIPATION [None]
  - COUGH [None]
  - FATIGUE [None]
  - GASTROINTESTINAL DISORDER [None]
  - HEADACHE [None]
  - HEART RATE INCREASED [None]
  - INSOMNIA [None]
  - IRRITABILITY [None]
  - MALAISE [None]
  - MENTAL DISORDER [None]
  - MUSCULOSKELETAL DISORDER [None]
  - MUSCULOSKELETAL STIFFNESS [None]
  - NAUSEA [None]
  - NECK PAIN [None]
  - NERVOUSNESS [None]
  - PAIN [None]
  - PERSONALITY CHANGE [None]
  - SINUS DISORDER [None]
  - VOMITING [None]
